FAERS Safety Report 10551074 (Version 1)
Quarter: 2014Q4

REPORT INFORMATION
  Report Type: Spontaneous
  Country: US (occurrence: None)
  Receive Date: 20141020
  Receipt Date: 20141020
  Transmission Date: 20150529
  Serious: No
  Sender: FDA-Public Use
  Company Number: AEGR000619

PATIENT
  Sex: Female

DRUGS (1)
  1. JUXTAPID [Suspect]
     Active Substance: LOMITAPIDE MESYLATE
     Indication: PRODUCT USED FOR UNKNOWN INDICATION
     Dates: start: 20140501

REACTIONS (5)
  - Product used for unknown indication [None]
  - Diarrhoea [None]
  - Weight decreased [None]
  - Sleep apnoea syndrome [None]
  - Vomiting [None]

NARRATIVE: CASE EVENT DATE: 20140401
